FAERS Safety Report 6309891-0 (Version None)
Quarter: 2009Q3

REPORT INFORMATION
  Report Type: 
  Country: None (occurrence: None)
  Receive Date: 20090814
  Receipt Date: 20090805
  Transmission Date: 20100115
  Serious: Yes (Hospitalization)
  Sender: FDA-Public Use
  Company Number: A0728405A

PATIENT
  Age: 52 Year
  Sex: Female
  Weight: 122.7 kg

DRUGS (9)
  1. AVANDIA [Suspect]
     Dosage: 2MG PER DAY
     Route: 048
     Dates: start: 20020201, end: 20070501
  2. METFORMIN HCL [Concomitant]
  3. ALPRAZOLAM [Concomitant]
  4. METFORMIN HCL [Concomitant]
  5. HYZAAR [Concomitant]
  6. LIPITOR [Concomitant]
  7. DETROL [Concomitant]
  8. PROTONIX [Concomitant]
  9. CELEBREX [Concomitant]

REACTIONS (3)
  - CARDIAC FAILURE CONGESTIVE [None]
  - HEART INJURY [None]
  - MYOCARDIAL INFARCTION [None]
